FAERS Safety Report 23315223 (Version 1)
Quarter: 2023Q4

REPORT INFORMATION
  Report Type: Spontaneous
  Country: US (occurrence: None)
  Receive Date: 20231219
  Receipt Date: 20231219
  Transmission Date: 20240110
  Serious: Yes (Hospitalization)
  Sender: FDA-Public Use
  Company Number: None

PATIENT
  Age: 61 Year
  Sex: Female

DRUGS (21)
  1. TACROLIMUS [Suspect]
     Active Substance: TACROLIMUS
     Indication: Lung transplant
     Dosage: FREQUENCY : TWICE A DAY;?
     Route: 048
  2. MYCOPHENOLIC ACID [Suspect]
     Active Substance: MYCOPHENOLIC ACID
     Indication: Lung transplant
     Dosage: FREQUENCY : TWICE A DAY;?
     Route: 048
  3. Aspirin 81 mg chewable tabs [Concomitant]
  4. Atovaquone 750 mg/5 ml [Concomitant]
  5. Calcium + Vit D ( 600-400 MG) [Concomitant]
  6. Clopidogril 75 mg [Concomitant]
  7. ESOMEPRAZOLE [Concomitant]
     Active Substance: ESOMEPRAZOLE
  8. FLUOXETINE [Concomitant]
     Active Substance: FLUOXETINE HYDROCHLORIDE
  9. GABAPENTIN [Concomitant]
     Active Substance: GABAPENTIN
  10. Ipratropium /Albuterol 0.5/3 mg [Concomitant]
  11. Levothyroxine 0.1 mg [Concomitant]
  12. mag oxide 400 mg [Concomitant]
  13. Melatonin 3 mg [Concomitant]
  14. VITAMINS [Concomitant]
     Active Substance: VITAMINS
  15. MYCOPHENOLATE MOFETIL [Concomitant]
     Active Substance: MYCOPHENOLATE MOFETIL
  16. OLANZAPINE [Concomitant]
     Active Substance: OLANZAPINE
  17. Posaconazole  100 mg [Concomitant]
  18. PREDNISONE [Concomitant]
     Active Substance: PREDNISONE
  19. PROPRANOLOL [Concomitant]
     Active Substance: PROPRANOLOL HYDROCHLORIDE
  20. ROSUVASTATIN [Concomitant]
     Active Substance: ROSUVASTATIN
  21. VALACYCLOVIR HYDROCHLORIDE [Concomitant]
     Active Substance: VALACYCLOVIR HYDROCHLORIDE

REACTIONS (2)
  - Transplant [None]
  - Post procedural complication [None]

NARRATIVE: CASE EVENT DATE: 20231123
